FAERS Safety Report 9474577 (Version 1)
Quarter: 2013Q3

REPORT INFORMATION
  Report Type: Spontaneous
  Country: US (occurrence: US)
  Receive Date: 20130823
  Receipt Date: 20130823
  Transmission Date: 20140515
  Serious: Yes (Other)
  Sender: FDA-Public Use
  Company Number: US-BRISTOL-MYERS SQUIBB COMPANY-19209113

PATIENT
  Sex: Female

DRUGS (8)
  1. ABILIFY [Suspect]
     Indication: DEPRESSION
  2. SUBUTEX [Suspect]
     Indication: DRUG DEPENDENCE
     Route: 060
     Dates: start: 2013, end: 2013
  3. HEROIN [Suspect]
     Indication: SUBSTANCE USE
     Dates: end: 20130618
  4. COCAINE [Suspect]
     Indication: SUBSTANCE USE
     Dates: end: 20130618
  5. MARIJUANA [Suspect]
     Indication: SUBSTANCE USE
     Dates: end: 20130618
  6. XANAX [Suspect]
     Indication: ANXIETY
     Dates: end: 2013
  7. NICOTINE [Suspect]
     Indication: NICOTINE DEPENDENCE
     Dates: end: 20130618
  8. AMITRIPTYLINE [Suspect]
     Indication: INSOMNIA

REACTIONS (4)
  - Substance abuse [Unknown]
  - Drug dependence [Unknown]
  - Pregnancy [Recovered/Resolved]
  - Live birth [Unknown]
